FAERS Safety Report 21668130 (Version 3)
Quarter: 2023Q1

REPORT INFORMATION
  Report Type: Report from Study
  Country: DE (occurrence: DE)
  Receive Date: 20221201
  Receipt Date: 20230307
  Transmission Date: 20230418
  Serious: Yes (Other)
  Sender: FDA-Public Use
  Company Number: DE-002147023-NVSC2022DE220485

PATIENT
  Sex: Female

DRUGS (7)
  1. ZOLEDRONIC ACID [Suspect]
     Active Substance: ZOLEDRONIC ACID
     Indication: Metastases to bone
     Dosage: 4 GRAM, Q4W (EVERY 4 WEEKS)
     Route: 042
     Dates: start: 20191022, end: 20220916
  2. LETROZOLE [Suspect]
     Active Substance: LETROZOLE
     Indication: Hormone receptor positive HER2 negative breast cancer
     Dosage: 2.5 MG, QD
     Route: 048
     Dates: start: 20191009, end: 20211215
  3. KISQALI [Suspect]
     Active Substance: RIBOCICLIB
     Indication: Hormone receptor positive HER2 negative breast cancer
     Dosage: 600 MG, QD (SCHEME 21 DAYS INTAKE, 7 DAYS PAUSE)
     Route: 048
     Dates: start: 20191105, end: 20191226
  4. KISQALI [Suspect]
     Active Substance: RIBOCICLIB
     Dosage: 400 MG, QD (SCHEME  21 DAYS INTAKE, 7 DAYS PAUSE)
     Route: 048
     Dates: start: 20200318, end: 20200601
  5. KISQALI [Suspect]
     Active Substance: RIBOCICLIB
     Dosage: 200 MG, QD (SCHEME 21 DAYS INTAKE, 7 DAYS PAUSE)
     Route: 048
     Dates: start: 20200825, end: 20211215
  6. KISQALI [Suspect]
     Active Substance: RIBOCICLIB
     Dosage: 600 MG, QD (SCHEME  21 DAYS INTAKE, 7 DAYS PAUSE)
     Route: 048
     Dates: start: 20200103, end: 20200317
  7. KISQALI [Suspect]
     Active Substance: RIBOCICLIB
     Dosage: 200 MG, QD (SCHEME  21 DAYS INTAKE, 7 DAYS PAUSE)
     Route: 048
     Dates: start: 20200701, end: 20200728

REACTIONS (1)
  - Toothache [Not Recovered/Not Resolved]

NARRATIVE: CASE EVENT DATE: 20220921
